FAERS Safety Report 6160993-1 (Version None)
Quarter: 2009Q2

REPORT INFORMATION
  Report Type: 
  Country: None (occurrence: None)
  Receive Date: 20090420
  Receipt Date: 20090408
  Transmission Date: 20091009
  Serious: Yes (Life-Threatening, Hospitalization, Other)
  Sender: FDA-Public Use
  Company Number: EG-PFIZER INC-2008046632

PATIENT

DRUGS (26)
  1. ITRACONAZOLE [Suspect]
     Indication: FUNGAL INFECTION
     Dosage: 200 MG, 2X/DAY
     Route: 042
     Dates: start: 20080217, end: 20080310
  2. ITRACONAZOLE [Suspect]
     Dosage: 200 MG, 2X/DAY
     Route: 048
     Dates: start: 20080311, end: 20080505
  3. ITRACONAZOLE [Suspect]
     Dosage: 200 MG, 2X/DAY
     Route: 048
     Dates: start: 20080506, end: 20080526
  4. PREDNISOLONE AND PREDNISOLONE STEAGLATE [Suspect]
     Route: 048
     Dates: start: 20080413
  5. ACYCLOVIR [Concomitant]
     Route: 042
     Dates: start: 20080206
  6. VANCOMYCIN HCL [Concomitant]
     Route: 042
     Dates: start: 20080229, end: 20080308
  7. IMIPENEM [Concomitant]
     Route: 042
     Dates: start: 20080226, end: 20080308
  8. SULFAMETHOXAZOLE AND TRIMETHOPRIM [Concomitant]
     Route: 048
     Dates: start: 20080307
  9. PHENOXYMETHYLPENICILLIN [Concomitant]
     Route: 048
     Dates: start: 20080308
  10. CALCIUM [Concomitant]
     Route: 048
     Dates: start: 20080309
  11. AMLODIPINE [Concomitant]
     Route: 048
     Dates: start: 20080211
  12. CYCLOSPORINE [Concomitant]
     Route: 042
     Dates: start: 20080216
  13. ENOXAPARIN SODIUM [Concomitant]
     Route: 058
     Dates: start: 20080205, end: 20080209
  14. METHOTREXATE [Concomitant]
     Route: 042
     Dates: start: 20080218, end: 20080218
  15. LEUCOVORIN CALCIUM [Concomitant]
     Route: 042
     Dates: start: 20080219, end: 20080219
  16. METHOTREXATE [Concomitant]
     Route: 042
     Dates: start: 20080220, end: 20080220
  17. LEUCOVORIN CALCIUM [Concomitant]
     Route: 042
     Dates: start: 20080221, end: 20080221
  18. PIPERACILLIN AND TAZOBACTAM [Concomitant]
     Route: 042
     Dates: start: 20080221, end: 20080226
  19. AMIKACIN [Concomitant]
     Route: 042
     Dates: start: 20080221, end: 20080302
  20. METHOTREXATE [Concomitant]
     Route: 042
     Dates: start: 20080223, end: 20080223
  21. LEUCOVORIN CALCIUM [Concomitant]
     Route: 042
     Dates: start: 20080223, end: 20080223
  22. METHOTREXATE [Concomitant]
     Route: 042
     Dates: start: 20080228, end: 20080228
  23. LEUCOVORIN CALCIUM [Concomitant]
     Route: 042
     Dates: start: 20080229, end: 20080229
  24. TRAMADOL HCL [Concomitant]
     Route: 042
     Dates: start: 20080225, end: 20080304
  25. FOLIC ACID [Concomitant]
     Route: 048
     Dates: start: 20080303
  26. OMEPRAZOLE [Concomitant]
     Route: 048
     Dates: start: 20080413

REACTIONS (2)
  - DIABETIC KETOACIDOSIS [None]
  - PNEUMONIA [None]
